FAERS Safety Report 10136287 (Version 2)
Quarter: 2014Q2

REPORT INFORMATION
  Report Type: Spontaneous
  Country: US (occurrence: None)
  Receive Date: 20140425
  Receipt Date: 20140502
  Transmission Date: 20141212
  Serious: Yes (Other)
  Sender: FDA-Public Use
  Company Number: 2014P1003340

PATIENT
  Age: 16 Year
  Sex: Male

DRUGS (1)
  1. MYORISAN [Suspect]
     Indication: ACNE
     Route: 048
     Dates: start: 20140305, end: 20140322

REACTIONS (4)
  - Abnormal behaviour [None]
  - Blood cholesterol increased [None]
  - Attention deficit/hyperactivity disorder [None]
  - Pyromania [None]
